FAERS Safety Report 16686292 (Version 1)
Quarter: 2019Q3

REPORT INFORMATION
  Report Type: Report from Study
  Country: FR (occurrence: FR)
  Receive Date: 20190809
  Receipt Date: 20190809
  Transmission Date: 20191004
  Serious: Yes (Congenital Anomaly, Other)
  Sender: FDA-Public Use
  Company Number: FR-HETERO-HET2019FR01103

PATIENT

DRUGS (1)
  1. TENOFOVIR [Suspect]
     Active Substance: TENOFOVIR
     Indication: HEPATITIS B
     Dosage: UNK
     Route: 064
     Dates: start: 20141217, end: 20150218

REACTIONS (2)
  - Foetal exposure during pregnancy [Unknown]
  - Mitochondrial cytopathy [Unknown]
